FAERS Safety Report 8837383 (Version 1)
Quarter: 2012Q4

REPORT INFORMATION
  Report Type: Spontaneous
  Country: US (occurrence: None)
  Receive Date: 20121011
  Receipt Date: 20121011
  Transmission Date: 20130627
  Serious: Yes (Other)
  Sender: FDA-Public Use
  Company Number: None

PATIENT
  Age: 49 Year
  Sex: Female
  Weight: 99.79 kg

DRUGS (1)
  1. CYMBALTA [Suspect]

REACTIONS (10)
  - Paraesthesia [None]
  - Suicidal ideation [None]
  - Tinnitus [None]
  - Anxiety [None]
  - Crying [None]
  - Anger [None]
  - Nausea [None]
  - Diarrhoea [None]
  - Sleep disorder [None]
  - Feeling of body temperature change [None]
